FAERS Safety Report 10269949 (Version 1)
Quarter: 2014Q3

REPORT INFORMATION
  Report Type: Spontaneous
  Country: FR (occurrence: FR)
  Receive Date: 20140701
  Receipt Date: 20140701
  Transmission Date: 20150326
  Serious: Yes (Hospitalization)
  Sender: FDA-Public Use
  Company Number: FR-TEVA-489808ISR

PATIENT
  Age: 13 Year
  Sex: Male

DRUGS (5)
  1. ENDOXAN [Suspect]
     Active Substance: CYCLOPHOSPHAMIDE
     Indication: LYMPHOMA
     Dosage: 1340 MILLIGRAM DAILY; I.E. DAY 27 OF CHEMOTHERAPY
     Route: 041
     Dates: start: 20140113
  2. METHOTREXATE (METHOTREXATE SODIUM) [Concomitant]
     Active Substance: METHOTREXATE SODIUM
     Indication: LYMPHOMA
     Dosage: 12 MILLIGRAM DAILY; I.E. DAY 34 OF CHEMOTHERAPY
     Route: 037
     Dates: start: 20140110
  3. VINCRISTINE  TEVA [Suspect]
     Active Substance: VINCRISTINE
     Indication: LYMPHOMA
     Dosage: 2 MILLIGRAM DAILY; I.E. DAY 27 OF CHEMOTHERAPY
     Route: 041
     Dates: start: 20140103
  4. ARACYTINE [Suspect]
     Active Substance: CYTARABINE
     Indication: LYMPHOMA
     Dosage: 100 MILLIGRAM DAILY; I.E. DAY 38 OF CHEMOTHERAPY
     Route: 041
     Dates: start: 20140114
  5. CERUBIDINE [Suspect]
     Active Substance: DAUNORUBICIN HYDROCHLORIDE
     Indication: LYMPHOMA
     Dosage: 43 MILLIGRAM DAILY; I.E. DAY 27 OF CHEMOTHERAPY
     Route: 041
     Dates: start: 20140103

REACTIONS (2)
  - Agranulocytosis [Recovered/Resolved]
  - Anaemia [Recovered/Resolved]

NARRATIVE: CASE EVENT DATE: 20140116
